FAERS Safety Report 4437745-3 (Version None)
Quarter: 2004Q3

REPORT INFORMATION
  Report Type: 
  Country: None (occurrence: None)
  Receive Date: 20040728
  Receipt Date: 20040318
  Transmission Date: 20050211
  Serious: No
  Sender: FDA-Public Use
  Company Number: USA040362523

PATIENT

DRUGS (1)
  1. STRATTERA [Suspect]
     Dosage: 120 MG DAY

REACTIONS (1)
  - PRESCRIBED OVERDOSE [None]
